FAERS Safety Report 7223636-1 (Version None)
Quarter: 2011Q1

REPORT INFORMATION
  Report Type: 
  Country: None (occurrence: None)
  Receive Date: 20110112
  Receipt Date: 20100914
  Transmission Date: 20110831
  Serious: No
  Sender: FDA-Public Use
  Company Number: US-ALLERGAN-1011905US

PATIENT
  Age: 71 Year
  Sex: Female

DRUGS (3)
  1. BLINK [Concomitant]
     Indication: DRY EYE
     Dosage: 1 GTT, PRN
     Route: 047
  2. SYSTANE [Concomitant]
     Indication: DRY EYE
     Dosage: 1 GTT, PRN
  3. RESTASIS [Suspect]
     Indication: DRY EYE
     Dosage: 1 GTT, QHS
     Route: 047
     Dates: start: 20100901

REACTIONS (3)
  - NECK PAIN [None]
  - DRUG INEFFECTIVE [None]
  - DRY THROAT [None]
